FAERS Safety Report 6632223-5 (Version None)
Quarter: 2010Q1

REPORT INFORMATION
  Report Type: 
  Country: None (occurrence: None)
  Receive Date: 20100312
  Receipt Date: 20100310
  Transmission Date: 20100710
  Serious: Yes (Hospitalization)
  Sender: FDA-Public Use
  Company Number: GXKR2010DE02814

PATIENT
  Age: 70 Year
  Sex: Male

DRUGS (11)
  1. METRONIDAZOLE [Suspect]
     Indication: ENTERITIS
     Dosage: 1200 MG/DAILY
     Route: 048
     Dates: start: 20100129, end: 20100203
  2. EMBOLEX [Concomitant]
  3. ACETYLCYSTEINE [Concomitant]
  4. AGGRENOX [Concomitant]
  5. PERENTEROL                              /GFR/ [Concomitant]
  6. METFORMIN HCL [Concomitant]
  7. PIOGLITAZONE [Concomitant]
  8. TAMSULOSIN HCL [Concomitant]
  9. CANDESARTAN [Concomitant]
  10. BISOPROLOL [Concomitant]
  11. SIMVASTATIN [Concomitant]

REACTIONS (1)
  - STEVENS-JOHNSON SYNDROME [None]
